FAERS Safety Report 5312281-0 (Version None)
Quarter: 2007Q2

REPORT INFORMATION
  Report Type: 
  Country: None (occurrence: None)
  Receive Date: 20070430
  Receipt Date: 20061006
  Transmission Date: 20071010
  Serious: No
  Sender: FDA-Public Use
  Company Number: 2006UW19495

PATIENT
  Age: 82 Year
  Sex: Female
  Weight: 54.4 kg

DRUGS (3)
  1. NEXIUM [Suspect]
     Indication: OESOPHAGITIS
     Route: 048
     Dates: start: 20020101
  2. DIOVAN [Concomitant]
  3. MAXZIDE [Concomitant]

REACTIONS (2)
  - BURNING SENSATION [None]
  - DIARRHOEA [None]
